FAERS Safety Report 7409774-9 (Version None)
Quarter: 2011Q2

REPORT INFORMATION
  Report Type: 
  Country: None (occurrence: None)
  Receive Date: 20110412
  Receipt Date: 20100225
  Transmission Date: 20111010
  Serious: Yes (Death, Other)
  Sender: FDA-Public Use
  Company Number: US-BAYER-201015769NA

PATIENT
  Age: 82 Year
  Sex: Female

DRUGS (9)
  1. TRASYLOL [Suspect]
     Indication: PRODUCT USED FOR UNKNOWN INDICATION
     Dosage: 10,000 UNITS/ML, 200 ML BOTTLE
     Route: 042
     Dates: start: 20061030, end: 20061030
  2. LABETALOL [Concomitant]
     Dosage: UNK
     Route: 042
     Dates: start: 20061030, end: 20061030
  3. MORPHINE [Concomitant]
     Dosage: UNK
     Route: 042
     Dates: start: 20061030, end: 20061030
  4. NITROGLYCERIN [Concomitant]
     Dosage: UNK
     Route: 042
     Dates: start: 20061030, end: 20061030
  5. ANCEF [Concomitant]
     Dosage: UNK
     Route: 042
     Dates: start: 20061030, end: 20061030
  6. PROTAMINE SULFATE [Concomitant]
     Dosage: UNK
     Route: 042
     Dates: start: 20061030, end: 20061030
  7. BUPIVACAINE HCL [Concomitant]
     Dosage: UNK
     Route: 042
     Dates: start: 20061030, end: 20061030
  8. HEPARIN [Concomitant]
     Dosage: UNK
     Route: 042
     Dates: start: 20061030, end: 20061030
  9. VANCOMYCIN [Concomitant]
     Dosage: UNK
     Route: 042
     Dates: start: 20061030, end: 20061030

REACTIONS (13)
  - RENAL FAILURE [None]
  - ANXIETY [None]
  - EMOTIONAL DISTRESS [None]
  - FEAR [None]
  - ANHEDONIA [None]
  - MULTI-ORGAN FAILURE [None]
  - RENAL INJURY [None]
  - INJURY [None]
  - STRESS [None]
  - PAIN [None]
  - DEATH [None]
  - RENAL IMPAIRMENT [None]
  - UNEVALUABLE EVENT [None]
